FAERS Safety Report 6287774-2 (Version None)
Quarter: 2009Q3

REPORT INFORMATION
  Report Type: 
  Country: None (occurrence: None)
  Receive Date: 20090727
  Receipt Date: 20090727
  Transmission Date: 20100115
  Serious: No
  Sender: FDA-Public Use
  Company Number: None

PATIENT
  Age: 43 Year
  Sex: Female
  Weight: 59 kg

DRUGS (1)
  1. VANCOMYCIN [Suspect]
     Indication: CELLULITIS
     Dosage: 1.5 GRAM GIVEN ONCE IV
     Route: 042
     Dates: start: 20090715, end: 20090715

REACTIONS (2)
  - ERYTHEMA [None]
  - PRURITUS [None]
